FAERS Safety Report 6036477-8 (Version None)
Quarter: 2009Q1

REPORT INFORMATION
  Report Type: 
  Country: None (occurrence: None)
  Receive Date: 20090112
  Receipt Date: 20090107
  Transmission Date: 20090719
  Serious: Yes (Disabling)
  Sender: FDA-Public Use
  Company Number: 6048065

PATIENT
  Age: 68 Year
  Sex: Female

DRUGS (1)
  1. BISOPROLOL FUMARATE [Suspect]
     Indication: HYPERTENSION
     Dosage: 2.5 MG, ORAL
     Route: 048
     Dates: start: 20081017, end: 20081109

REACTIONS (3)
  - FEELING OF BODY TEMPERATURE CHANGE [None]
  - MALAISE [None]
  - PRURITUS [None]
